FAERS Safety Report 16941813 (Version 1)
Quarter: 2019Q4

REPORT INFORMATION
  Report Type: Spontaneous
  Country: US (occurrence: US)
  Receive Date: 20190829
  Receipt Date: 20190829
  Transmission Date: 20200122
  Serious: Yes (Hospitalization)
  Sender: FDA-Public Use
  Company Number: None

PATIENT
  Age: 71 Year
  Sex: Male
  Weight: 101.6 kg

DRUGS (2)
  1. AMIODARONE [Suspect]
     Active Substance: AMIODARONE
     Indication: ATRIAL FIBRILLATION
     Dosage: ?          OTHER DOSE:1 TAB;?
     Route: 048
     Dates: start: 20181205, end: 20190522
  2. METHOTREXATE. [Suspect]
     Active Substance: METHOTREXATE
     Indication: PSORIATIC ARTHROPATHY
     Dosage: ?          OTHER DOSE:8 TAB;OTHER FREQUENCY:QWEEK;?
     Route: 048
     Dates: start: 20190103, end: 20190522

REACTIONS (8)
  - Cough [None]
  - Hypersensitivity pneumonitis [None]
  - Interstitial lung disease [None]
  - Adverse drug reaction [None]
  - Chills [None]
  - Pneumonia [None]
  - Diarrhoea [None]
  - Respiratory failure [None]

NARRATIVE: CASE EVENT DATE: 20190509
